FAERS Safety Report 19124049 (Version 1)
Quarter: 2021Q2

REPORT INFORMATION
  Report Type: Spontaneous
  Country: CN (occurrence: CN)
  Receive Date: 20210412
  Receipt Date: 20210412
  Transmission Date: 20210717
  Serious: Yes (Hospitalization)
  Sender: FDA-Public Use
  Company Number: CN-ELI_LILLY_AND_COMPANY-CN202104001290

PATIENT

DRUGS (1)
  1. VERZENIOS [Suspect]
     Active Substance: ABEMACICLIB
     Indication: BREAST CANCER
     Dosage: 150 MG, BID, ONCE IN THE MORNING, ONCE IN THE NIGHT
     Route: 048
     Dates: start: 20210316

REACTIONS (6)
  - Coinfection [Unknown]
  - Renal impairment [Unknown]
  - Myelosuppression [Unknown]
  - Cardiac failure [Unknown]
  - Liver disorder [Unknown]
  - Bacteraemia [Unknown]
